FAERS Safety Report 5228064-6 (Version None)
Quarter: 2007Q1

REPORT INFORMATION
  Report Type: 
  Country: None (occurrence: None)
  Receive Date: 20061201
  Receipt Date: 20061102
  Transmission Date: 20070707
  Serious: No
  Sender: FDA-Public Use
  Company Number: US200611000460

PATIENT
  Sex: Female

DRUGS (4)
  1. ALIMTA [Suspect]
     Indication: NON-SMALL CELL LUNG CANCER
     Dates: start: 20060101
  2. VITAMIN B12 [Concomitant]
  3. FOLIC ACID [Concomitant]
  4. DEXAMETHASONE TAB [Concomitant]

REACTIONS (1)
  - PALMAR-PLANTAR ERYTHRODYSAESTHESIA SYNDROME [None]
